FAERS Safety Report 7766175-1 (Version None)
Quarter: 2011Q3

REPORT INFORMATION
  Report Type: 
  Country: None (occurrence: None)
  Receive Date: 20110921
  Receipt Date: 20110916
  Transmission Date: 20111222
  Serious: Yes (Other)
  Sender: FDA-Public Use
  Company Number: CN-ASTRAZENECA-2011SE55671

PATIENT
  Sex: Female

DRUGS (5)
  1. LIDOCAINE [Suspect]
     Indication: ANALGESIC THERAPY
     Route: 008
  2. SODIUM CHLORIDE [Concomitant]
     Indication: ANALGESIC THERAPY
  3. ROPIVACAINE HYDROCHLORIDE [Suspect]
     Indication: ANALGESIC THERAPY
     Route: 008
  4. ROPIVACAINE HYDROCHLORIDE [Suspect]
     Route: 008
  5. SUFENTANIL CITRATE [Suspect]
     Indication: ANALGESIC THERAPY

REACTIONS (1)
  - URINARY RETENTION [None]
